FAERS Safety Report 19856157 (Version 1)
Quarter: 2021Q3

REPORT INFORMATION
  Report Type: Spontaneous
  Country: DE (occurrence: DE)
  Receive Date: 20210920
  Receipt Date: 20210920
  Transmission Date: 20211014
  Serious: Yes (Hospitalization, Other)
  Sender: FDA-Public Use
  Company Number: DE-TEVA-2021-DE-1952790

PATIENT
  Age: 92 Year
  Sex: Female
  Weight: 55 kg

DRUGS (11)
  1. AMLODIPIN [Concomitant]
     Active Substance: AMLODIPINE BESYLATE
     Dosage: 10 MILLIGRAM DAILY;  1?0?1?0
     Route: 048
  2. METAMIZOL [Concomitant]
     Active Substance: METAMIZOLE SODIUM
     Dosage: 2000 MILLIGRAM DAILY;  1?1?1?1
     Route: 048
  3. TORASEMID [Suspect]
     Active Substance: TORSEMIDE
     Dosage: 1.5 DOSAGE FORMS DAILY; 10 MG, 1.5?0?0?0
     Route: 048
  4. CANDESARTAN. [Concomitant]
     Active Substance: CANDESARTAN
     Dosage: 32 MILLIGRAM DAILY; 1?0?1?0
     Route: 048
  5. DULCOLAX NP [Concomitant]
     Dosage: 2.5 MG, IF NECESSARY
     Route: 048
  6. BISACODYL. [Concomitant]
     Active Substance: BISACODYL
     Dosage: 10 MG, IF NECESSARY
     Route: 054
  7. QUETIAPIN ? 1 A PHARMA 25 MG FILMTABLETTEN [Concomitant]
     Active Substance: QUETIAPINE
     Dosage: 25 MILLIGRAM DAILY;  1?0?0?0
     Route: 048
  8. LIXIANA 30MG [Suspect]
     Active Substance: EDOXABAN TOSYLATE
     Dosage: 30 MILLIGRAM DAILY;  1?0?0?0
     Route: 048
  9. SPIRONOLACTON [Suspect]
     Active Substance: SPIRONOLACTONE
     Dosage: 50 MG, MONDAY WEDNESDAY FRIDAY MORNING ONE TABLET,
     Route: 048
  10. NALOXON/TILIDIN [Concomitant]
     Active Substance: NALOXONE HYDROCHLORIDE\TILIDINE HYDROCHLORIDE
     Dosage: 4 DOSAGE FORMS DAILY; 8|100 MG, 2?0?2?0
     Route: 048
  11. XIPAMID [Suspect]
     Active Substance: XIPAMIDE
     Dosage: 10 MILLIGRAM DAILY; 1?0?0?0
     Route: 048

REACTIONS (11)
  - Dysphagia [Unknown]
  - Hyponatraemia [Unknown]
  - Abdominal pain [Unknown]
  - Decreased appetite [Unknown]
  - Product prescribing error [Unknown]
  - Weight decreased [Unknown]
  - Dehydration [Unknown]
  - Flatulence [Unknown]
  - Faeces hard [Unknown]
  - Gastritis haemorrhagic [Unknown]
  - Eructation [Unknown]
